FAERS Safety Report 7772326-5 (Version None)
Quarter: 2011Q3

REPORT INFORMATION
  Report Type: 
  Country: None (occurrence: None)
  Receive Date: 20110922
  Receipt Date: 20100115
  Transmission Date: 20111222
  Serious: No
  Sender: FDA-Public Use
  Company Number: US-ASTRAZENECA-2009SE08959

PATIENT
  Age: 35 Year
  Sex: Female
  Weight: 127 kg

DRUGS (16)
  1. CLONAZEPAM [Concomitant]
     Dates: start: 20060903
  2. CYMBALTA [Concomitant]
     Dates: start: 20060818
  3. SEROQUEL [Suspect]
     Indication: BIPOLAR DISORDER
     Route: 048
     Dates: start: 20010101, end: 20050101
  4. SEROQUEL [Suspect]
     Route: 048
     Dates: start: 20060914
  5. RISPERDAL [Concomitant]
  6. ZYPREXA [Concomitant]
  7. TRIHEXYPHENIDYL HCL [Concomitant]
     Dates: start: 20060902
  8. AMBIEN [Concomitant]
     Dates: start: 20060919
  9. THORAZINE [Concomitant]
  10. SEROQUEL [Suspect]
     Indication: SCHIZOPHRENIA
     Route: 048
     Dates: start: 20010101, end: 20050101
  11. SEROQUEL [Suspect]
     Route: 048
     Dates: start: 20060914
  12. GEODON [Concomitant]
  13. MENEST [Concomitant]
     Dates: start: 20060829
  14. HALDOL [Concomitant]
  15. BUSPIRONE HCL [Concomitant]
     Dates: start: 20060902
  16. ENALAPRIL MALEATE [Concomitant]
     Dates: start: 20060821

REACTIONS (5)
  - BLOOD CHOLESTEROL INCREASED [None]
  - TYPE 1 DIABETES MELLITUS [None]
  - HYPERLIPIDAEMIA [None]
  - OBESITY [None]
  - DIABETES MELLITUS INADEQUATE CONTROL [None]
